FAERS Safety Report 8954648 (Version 1)
Quarter: 2012Q4

REPORT INFORMATION
  Report Type: Report from Study
  Country: US (occurrence: US)
  Receive Date: 20121208
  Receipt Date: 20121208
  Transmission Date: 20130627
  Serious: Yes (Other)
  Sender: FDA-Public Use
  Company Number: US-ABBOTT-12P-163-1014470-00

PATIENT
  Age: 48 Year
  Sex: Female

DRUGS (20)
  1. HUMIRA [Suspect]
     Indication: CROHN^S DISEASE
     Dates: start: 20120806
  2. CYMBALTA [Concomitant]
     Indication: BIPOLAR DISORDER
  3. GABAPENTIN [Concomitant]
     Indication: PAIN
     Dosage: 300 mg x 2 tabs twice daily
  4. GABAPENTIN [Concomitant]
     Indication: PRODUCT USED FOR UNKNOWN INDICATION
     Dosage: At bedtime
  5. BENADRYL OTC [Concomitant]
     Indication: PRURITUS
  6. DEPAKOTE ER [Concomitant]
     Indication: CONVULSION
     Dosage: 250 mg x 2 tabs twice daily
  7. SEROQUEL [Concomitant]
     Indication: DEPRESSION
     Dosage: 25 mg 3 daily
  8. SEROQUEL [Concomitant]
     Indication: DEPRESSION
     Dosage: 200 mg x 1 to 2 at bedtime
  9. BACLOFEN [Concomitant]
     Indication: MUSCLE SPASMS
     Dosage: 20mg x 3 daily as required
  10. CLONEZEPAM [Concomitant]
     Indication: ANXIETY
     Dosage: 1mg x 2 daily as required
  11. OXYCONTIN ER [Concomitant]
     Indication: PAIN
     Dosage: 20 mg x 2 daily
  12. PERCOCET [Concomitant]
     Indication: PAIN
     Dosage: 5 mg x 2 daily as required
  13. VITAMIN [Concomitant]
     Indication: VITAMIN SUPPLEMENTATION
  14. FISH OIL [Concomitant]
     Indication: SUPPLEMENTATION THERAPY
  15. VITAMIN C [Concomitant]
     Indication: VITAMIN SUPPLEMENTATION
  16. VITAMIN D [Concomitant]
     Indication: VITAMIN SUPPLEMENTATION
  17. ZINC [Concomitant]
     Indication: MINERAL SUPPLEMENTATION
  18. ALKA-SELTZER OTC [Concomitant]
     Indication: DYSPEPSIA
  19. SENNA [Concomitant]
     Indication: CONSTIPATION
  20. LISINOPRIL [Concomitant]
     Indication: HYPERTENSION

REACTIONS (4)
  - Device extrusion [Unknown]
  - Pain in extremity [Not Recovered/Not Resolved]
  - Nerve injury [Unknown]
  - Paraesthesia [Unknown]
